FAERS Safety Report 11234918 (Version 1)
Quarter: 2015Q3

REPORT INFORMATION
  Report Type: Spontaneous
  Country: JP (occurrence: JP)
  Receive Date: 20150702
  Receipt Date: 20150702
  Transmission Date: 20151125
  Serious: Yes (Hospitalization)
  Sender: FDA-Public Use
  Company Number: JP-BIOCRYST PHARMACEUTICALS, INC.-2015BCR00035

PATIENT
  Age: 19 Year
  Sex: Male

DRUGS (19)
  1. RENIVACE [Concomitant]
     Active Substance: ENALAPRIL
     Indication: HEART DISEASE CONGENITAL
  2. LASIX [Concomitant]
     Active Substance: FUROSEMIDE
     Indication: DOUBLE OUTLET RIGHT VENTRICLE
  3. ALDACTONE A [Concomitant]
     Active Substance: SPIRONOLACTONE
     Indication: PULMONARY ARTERY ATRESIA
  4. ALOSITOL [Concomitant]
     Active Substance: ALLOPURINOL
     Indication: DOUBLE OUTLET RIGHT VENTRICLE
  5. LASIX [Concomitant]
     Active Substance: FUROSEMIDE
     Indication: HEART DISEASE CONGENITAL
  6. ALOSITOL [Concomitant]
     Active Substance: ALLOPURINOL
     Indication: HEART DISEASE CONGENITAL
  7. ROCEPHIN [Concomitant]
     Active Substance: CEFTRIAXONE SODIUM
     Indication: ENDOCARDITIS
     Dosage: 2 G, 1X/DAY
     Route: 042
     Dates: start: 20150108, end: 20150204
  8. RENIVACE [Concomitant]
     Active Substance: ENALAPRIL
     Indication: DOUBLE OUTLET RIGHT VENTRICLE
  9. GENTACIN [Concomitant]
     Active Substance: GENTAMICIN SULFATE
     Indication: ENDOCARDITIS
     Dosage: 120 MG, 1X/DAY
     Route: 042
     Dates: start: 20150108, end: 20150126
  10. ALOSITOL [Concomitant]
     Active Substance: ALLOPURINOL
     Indication: VENTRICULAR SEPTAL DEFECT
     Dosage: 50 MG, 1X/DAY
     Route: 048
  11. LASIX [Concomitant]
     Active Substance: FUROSEMIDE
     Indication: PULMONARY ARTERY ATRESIA
  12. ALOSITOL [Concomitant]
     Active Substance: ALLOPURINOL
     Indication: PULMONARY ARTERY ATRESIA
  13. RENIVACE [Concomitant]
     Active Substance: ENALAPRIL
     Indication: VENTRICULAR SEPTAL DEFECT
     Dosage: 3 MG, 1X/DAY
     Route: 048
  14. RENIVACE [Concomitant]
     Active Substance: ENALAPRIL
     Indication: PULMONARY ARTERY ATRESIA
  15. ALDACTONE A [Concomitant]
     Active Substance: SPIRONOLACTONE
     Indication: DOUBLE OUTLET RIGHT VENTRICLE
  16. RAPIACTA [Suspect]
     Active Substance: PERAMIVIR
     Indication: INFLUENZA
     Dosage: 300 MG, UNK
     Route: 042
     Dates: start: 20150121, end: 20150121
  17. ALDACTONE A [Concomitant]
     Active Substance: SPIRONOLACTONE
     Indication: HEART DISEASE CONGENITAL
  18. LASIX [Concomitant]
     Active Substance: FUROSEMIDE
     Indication: VENTRICULAR SEPTAL DEFECT
     Dosage: 30 MG, 1X/DAY
     Route: 048
  19. ALDACTONE A [Concomitant]
     Active Substance: SPIRONOLACTONE
     Indication: VENTRICULAR SEPTAL DEFECT
     Dosage: 30 MG, 1X/DAY
     Route: 048

REACTIONS (1)
  - Agranulocytosis [Recovered/Resolved]

NARRATIVE: CASE EVENT DATE: 20150204
